FAERS Safety Report 10022102 (Version 1)
Quarter: 2014Q1

REPORT INFORMATION
  Report Type: Spontaneous
  Country: US (occurrence: US)
  Receive Date: 20140319
  Receipt Date: 20140319
  Transmission Date: 20141002
  Serious: Yes (Death, Hospitalization)
  Sender: FDA-Public Use
  Company Number: US-GLAXOSMITHKLINE-A1064901A

PATIENT
  Age: 90 Year
  Sex: Female

DRUGS (2)
  1. ADVAIR [Suspect]
     Indication: DYSPNOEA
     Dosage: 1PUFF TWICE PER DAY
     Route: 055
     Dates: start: 201401, end: 20140217
  2. UNSPECIFIED PATCH [Concomitant]

REACTIONS (2)
  - Coronary artery disease [Fatal]
  - Cardiac disorder [Unknown]
